FAERS Safety Report 11964736 (Version 2)
Quarter: 2016Q1

REPORT INFORMATION
  Report Type: Spontaneous
  Country: US (occurrence: US)
  Receive Date: 20160127
  Receipt Date: 20160229
  Transmission Date: 20160526
  Serious: Yes (Hospitalization)
  Sender: FDA-Public Use
  Company Number: US-BEH-2016057918

PATIENT
  Age: 60 Year
  Sex: Male
  Weight: 76 kg

DRUGS (16)
  1. ZEMAIRA [Suspect]
     Active Substance: .ALPHA.1-PROTEINASE INHIBITOR HUMAN
     Indication: ALPHA-1 ANTI-TRYPSIN DEFICIENCY
     Dosage: 1030 MG/VL
     Route: 042
  2. KLONOPIN [Concomitant]
     Active Substance: CLONAZEPAM
  3. FLOMAX [Concomitant]
     Active Substance: TAMSULOSIN HYDROCHLORIDE
  4. SYMBICORT [Concomitant]
     Active Substance: BUDESONIDE\FORMOTEROL FUMARATE DIHYDRATE
  5. DIPHENHYDRAMINE. [Concomitant]
     Active Substance: DIPHENHYDRAMINE
  6. PROTONIX [Concomitant]
     Active Substance: PANTOPRAZOLE SODIUM
  7. MERCAPTOPURINE. [Concomitant]
     Active Substance: MERCAPTOPURINE
  8. EPIPEN [Concomitant]
     Active Substance: EPINEPHRINE
  9. LMX [Concomitant]
     Active Substance: LIDOCAINE
  10. LOSARTAN. [Concomitant]
     Active Substance: LOSARTAN
  11. SODIUM CHLORIDE. [Concomitant]
     Active Substance: SODIUM CHLORIDE
  12. WELLBUTRIN [Concomitant]
     Active Substance: BUPROPION HYDROCHLORIDE
  13. ALBUTEROL. [Concomitant]
     Active Substance: ALBUTEROL
  14. ZEMAIRA [Suspect]
     Active Substance: .ALPHA.1-PROTEINASE INHIBITOR HUMAN
     Indication: EMPHYSEMA
     Dosage: 1030 MG/VL
     Route: 042
  15. DELZICOL [Concomitant]
     Active Substance: MESALAMINE
  16. DALIRESP [Concomitant]
     Active Substance: ROFLUMILAST

REACTIONS (1)
  - Pneumonia [Unknown]

NARRATIVE: CASE EVENT DATE: 20160112
